FAERS Safety Report 5932786-9 (Version None)
Quarter: 2008Q4

REPORT INFORMATION
  Report Type: 
  Country: None (occurrence: None)
  Receive Date: 20081028
  Receipt Date: 20081023
  Transmission Date: 20090506
  Serious: Yes (Life-Threatening, Hospitalization)
  Sender: FDA-Public Use
  Company Number: B0538427A

PATIENT
  Age: 38 Year
  Sex: Male

DRUGS (5)
  1. ZOVIRAX [Suspect]
     Indication: VIRAL INFECTION
     Dosage: 500MG PER DAY
     Route: 042
     Dates: start: 20070618, end: 20070622
  2. TEGRETOL [Suspect]
     Indication: ANALGESIA
     Dosage: 100MG TWICE PER DAY
     Route: 048
     Dates: start: 20070617, end: 20070622
  3. APLACE [Concomitant]
     Indication: GASTRIC ULCER
     Dosage: 300MG PER DAY
     Route: 048
     Dates: start: 20070617, end: 20070622
  4. CRAVIT [Concomitant]
     Indication: ANTIBIOTIC PROPHYLAXIS
     Dosage: 300MG PER DAY
     Route: 048
     Dates: start: 20070617, end: 20070622
  5. CYANOCOBALAMIN [Concomitant]
     Indication: NERVOUS SYSTEM DISORDER
     Dosage: 750MCG PER DAY
     Route: 048
     Dates: start: 20070618, end: 20070622

REACTIONS (10)
  - APHTHOUS STOMATITIS [None]
  - BLISTER [None]
  - CONJUNCTIVAL HYPERAEMIA [None]
  - ERYTHEMA [None]
  - ILL-DEFINED DISORDER [None]
  - LIVER DISORDER [None]
  - MUCOUS MEMBRANE DISORDER [None]
  - RASH [None]
  - SKIN EROSION [None]
  - TOXIC EPIDERMAL NECROLYSIS [None]
